FAERS Safety Report 9509027 (Version 1)
Quarter: 2013Q3

REPORT INFORMATION
  Report Type: Spontaneous
  Country: US (occurrence: US)
  Receive Date: 20130909
  Receipt Date: 20130909
  Transmission Date: 20140515
  Serious: No
  Sender: FDA-Public Use
  Company Number: US-BRISTOL-MYERS SQUIBB COMPANY-17376062

PATIENT
  Age: 3 Decade
  Sex: Female

DRUGS (1)
  1. ABILIFY TABS 2 MG [Suspect]
     Indication: MAJOR DEPRESSION
     Dosage: INITIALLY 2MG AND INCREASED TO 5MG AND AGIN 2MG

REACTIONS (4)
  - Drug ineffective [Unknown]
  - Fatigue [Unknown]
  - Irritability [Unknown]
  - Sedation [Unknown]
